FAERS Safety Report 9225271 (Version 2)
Quarter: 2013Q2

REPORT INFORMATION
  Report Type: Report from Study
  Country: CA (occurrence: CA)
  Receive Date: 20130411
  Receipt Date: 20130418
  Transmission Date: 20140414
  Serious: Yes (Hospitalization)
  Sender: FDA-Public Use
  Company Number: CA-ROCHE-1177309

PATIENT
  Age: 49 Year
  Sex: Male
  Weight: 82 kg

DRUGS (17)
  1. RITUXAN [Suspect]
     Indication: GRAFT VERSUS HOST DISEASE
     Route: 042
     Dates: start: 20121016, end: 20130205
  2. RITUXAN [Suspect]
     Dosage: RESUMED ON JAN AND FEB 2013
     Route: 042
  3. PREDNISONE [Suspect]
     Indication: GRAFT VERSUS HOST DISEASE
     Route: 048
     Dates: start: 20120313
  4. PREDNISONE [Suspect]
     Route: 048
  5. MYFORTIC [Suspect]
     Indication: GRAFT VERSUS HOST DISEASE
     Dosage: 1080MGIN MORNING AND 720MG IN EVENING
     Route: 048
     Dates: start: 20120810
  6. ATENOLOL [Concomitant]
     Route: 048
  7. RABEPRAZOLE [Concomitant]
  8. HYDROXYCHLOROQUINE [Concomitant]
     Route: 065
     Dates: end: 201210
  9. POTASSIUM CHLORIDE [Concomitant]
  10. AZATHIOPRINE [Concomitant]
     Route: 065
     Dates: end: 201210
  11. SODIUM ACID PHOSPHATE [Concomitant]
  12. SULFATRIM [Concomitant]
     Route: 065
     Dates: end: 201210
  13. RISEDRONATE [Concomitant]
  14. FLUCONAZOLE [Concomitant]
  15. PENTAMIDINE [Concomitant]
  16. URSODIOL [Concomitant]
  17. CETRIZINE [Concomitant]

REACTIONS (1)
  - Bronchopulmonary aspergillosis [Recovered/Resolved]
